FAERS Safety Report 5032362-9 (Version None)
Quarter: 2006Q2

REPORT INFORMATION
  Report Type: 
  Country: None (occurrence: None)
  Receive Date: 20060621
  Receipt Date: 20060621
  Transmission Date: 20061013
  Serious: Yes (Life-Threatening, Hospitalization)
  Sender: FDA-Public Use
  Company Number: None

PATIENT
  Age: 60 Year
  Sex: Male
  Weight: 96.4 kg

DRUGS (9)
  1. HALOPERIDOL [Suspect]
     Indication: AGITATION
     Dosage: 5 MG 2 DOSES IM
     Route: 030
     Dates: start: 20060618, end: 20060619
  2. OLANZAPINE [Suspect]
     Indication: AGITATION
     Dosage: 5 MG 1 DOSE PO
     Route: 048
     Dates: start: 20060618, end: 20060618
  3. DIPHENHYDRAMINE HCL [Concomitant]
  4. CLONIDINE [Concomitant]
  5. HALOPERIDOL [Concomitant]
  6. LORAZEPAM [Concomitant]
  7. NIFEDIPINE [Concomitant]
  8. OLANZAPINE [Concomitant]
  9. DIPHENHYDRAMINE HCL [Concomitant]

REACTIONS (4)
  - BLOOD CREATINE PHOSPHOKINASE INCREASED [None]
  - NEUROLEPTIC MALIGNANT SYNDROME [None]
  - PYREXIA [None]
  - RHABDOMYOLYSIS [None]
